FAERS Safety Report 5429261-7 (Version None)
Quarter: 2007Q3

REPORT INFORMATION
  Report Type: 
  Country: None (occurrence: None)
  Receive Date: 20070827
  Receipt Date: 20070827
  Transmission Date: 20080115
  Serious: Yes (Life-Threatening, Hospitalization, Other)
  Sender: FDA-Public Use
  Company Number: None

PATIENT
  Age: 17 Year
  Sex: Female
  Weight: 68.0396 kg

DRUGS (1)
  1. LUPRON [Suspect]
     Indication: ENDOMETRIOSIS
     Dosage: 6MONTH TREATMENT ONCE A MONTH OTHER
     Dates: start: 20060314, end: 20060818

REACTIONS (5)
  - ARTHRALGIA [None]
  - HEADACHE [None]
  - MOOD SWINGS [None]
  - PERSONALITY DISORDER [None]
  - TOOTH FRACTURE [None]
